FAERS Safety Report 7752237-1 (Version None)
Quarter: 2011Q3

REPORT INFORMATION
  Report Type: 
  Country: None (occurrence: None)
  Receive Date: 20110915
  Receipt Date: 20110908
  Transmission Date: 20111222
  Serious: No
  Sender: FDA-Public Use
  Company Number: US-PFIZER INC-2011212490

PATIENT
  Sex: Female
  Weight: 49.2 kg

DRUGS (1)
  1. RELPAX [Suspect]
     Indication: MIGRAINE
     Dosage: 20 MG, 2X/DAY
     Route: 048
     Dates: start: 20110605, end: 20110605

REACTIONS (2)
  - VOMITING [None]
  - ABDOMINAL PAIN UPPER [None]
